FAERS Safety Report 7610514-9 (Version None)
Quarter: 2011Q3

REPORT INFORMATION
  Report Type: 
  Country: None (occurrence: None)
  Receive Date: 20110715
  Receipt Date: 20091122
  Transmission Date: 20111222
  Serious: Yes (Hospitalization, Other)
  Sender: FDA-Public Use
  Company Number: US-BAYER-200939818NA

PATIENT
  Age: 63 Year
  Sex: Male
  Weight: 74.83 kg

DRUGS (19)
  1. ACETYLSALICYLIC ACID SRT [Concomitant]
     Dosage: 325 MG, QD
     Route: 048
  2. LISINOPRIL [Concomitant]
     Dosage: 10 MG, QD
     Route: 048
  3. HEPARIN [Concomitant]
     Dosage: 28 ML, UNK
     Route: 042
     Dates: start: 20070621, end: 20070621
  4. TISSEEL KIT [Concomitant]
     Dosage: 10 ML, UNK
     Route: 061
  5. TRASYLOL [Suspect]
     Indication: MITRAL VALVE REPAIR
  6. METOPROLOL TARTRATE [Concomitant]
     Dosage: 25 MG, QD
     Route: 048
  7. NIACIN [Concomitant]
     Dosage: 500 MG, QD
     Route: 048
  8. CEFAZOLIN [Concomitant]
     Dosage: 1 G IRRIGATION
  9. IMDUR [Concomitant]
     Dosage: 30 MG, QD
     Route: 048
  10. ACTOS [Concomitant]
     Dosage: 15 MG, QD
     Route: 048
  11. NITROGLYCERIN [Concomitant]
     Dosage: 0.4 MG, QD
     Route: 048
  12. TRASYLOL [Suspect]
     Indication: PRODUCT USED FOR UNKNOWN INDICATION
     Route: 042
     Dates: start: 20070621
  13. LEVOTHYROXINE [Concomitant]
     Dosage: UNK
     Dates: start: 19830101, end: 20040101
  14. VYTORIN [Concomitant]
     Dosage: 10 MG, QD
     Route: 048
  15. ALLOPURINOL [Concomitant]
     Dosage: 100 MG, QD
     Route: 048
  16. PAPAVERINE [Concomitant]
     Dosage: UNK
     Route: 061
     Dates: start: 20070621, end: 20070621
  17. AMBIEN [Concomitant]
     Dosage: 10 MG, QD
     Route: 048
  18. THYROXIN [Concomitant]
     Dosage: 0.125 MG, QD
     Route: 048
  19. ZOLOFT [Concomitant]
     Dosage: 100 MG, QD
     Route: 048

REACTIONS (13)
  - INJURY [None]
  - PSYCHIATRIC SYMPTOM [None]
  - RENAL INJURY [None]
  - DEPRESSION [None]
  - RENAL FAILURE [None]
  - EMOTIONAL DISTRESS [None]
  - STRESS [None]
  - ANXIETY [None]
  - RENAL IMPAIRMENT [None]
  - UNEVALUABLE EVENT [None]
  - FEAR [None]
  - PAIN [None]
  - ANHEDONIA [None]
